FAERS Safety Report 23866328 (Version 2)
Quarter: 2024Q3

REPORT INFORMATION
  Report Type: Report from Study
  Country: JP (occurrence: JP)
  Receive Date: 20240517
  Receipt Date: 20240711
  Transmission Date: 20241016
  Serious: Yes (Death, Other)
  Sender: EXELIXIS
  Company Number: JP-TAKEDA-2024TJP006756

PATIENT
  Age: 75 Year
  Sex: Male
  Weight: 45 kg

DRUGS (7)
  1. CABOMETYX [Suspect]
     Active Substance: CABOZANTINIB S-MALATE
     Indication: Hepatocellular carcinoma
     Dosage: 40 MG, QD
     Route: 065
     Dates: start: 20230420, end: 20230426
  2. CABOMETYX [Suspect]
     Active Substance: CABOZANTINIB S-MALATE
     Dosage: 20 MG, QD
     Route: 065
     Dates: start: 20230427, end: 20230502
  3. CABOMETYX [Suspect]
     Active Substance: CABOZANTINIB S-MALATE
     Dosage: 7 MG, QD
     Route: 065
     Dates: start: 20230529, end: 20230628
  4. CABOMETYX [Suspect]
     Active Substance: CABOZANTINIB S-MALATE
     Dosage: 5 MG, QD
     Route: 065
     Dates: start: 20230629, end: 20230719
  5. CABOMETYX [Suspect]
     Active Substance: CABOZANTINIB S-MALATE
     Dosage: 7 MG, QD
     Route: 065
     Dates: start: 20230720, end: 20230830
  6. CABOMETYX [Suspect]
     Active Substance: CABOZANTINIB S-MALATE
     Dosage: 13 MG, QD
     Route: 065
     Dates: start: 20230831, end: 20231114
  7. CABOMETYX [Suspect]
     Active Substance: CABOZANTINIB S-MALATE
     Dosage: 7 MG, QD
     Route: 065
     Dates: start: 20231115, end: 20231202

REACTIONS (3)
  - Hepatocellular carcinoma [Fatal]
  - Malaise [Recovering/Resolving]
  - Palmar-plantar erythrodysaesthesia syndrome [Recovering/Resolving]

NARRATIVE: CASE EVENT DATE: 20230427
